FAERS Safety Report 4595538-0 (Version None)
Quarter: 2005Q1

REPORT INFORMATION
  Report Type: 
  Country: None (occurrence: None)
  Receive Date: 20050224
  Receipt Date: 20050207
  Transmission Date: 20050727
  Serious: Yes (Death)
  Sender: FDA-Public Use
  Company Number: USA050290204

PATIENT
  Age: 11 Year
  Sex: Male
  Weight: 58 kg

DRUGS (2)
  1. STRATTERA [Suspect]
     Indication: DEPRESSION
     Dosage: 40 MG
  2. WELLBUTRIN [Concomitant]

REACTIONS (1)
  - CARDIO-RESPIRATORY ARREST [None]
